FAERS Safety Report 17103164 (Version 1)
Quarter: 2019Q4

REPORT INFORMATION
  Report Type: Spontaneous
  Country: FR (occurrence: FR)
  Receive Date: 20191203
  Receipt Date: 20191203
  Transmission Date: 20200122
  Serious: Yes (Other)
  Sender: FDA-Public Use
  Company Number: FR-SAMSUNG BIOEPIS-SB-2019-34816

PATIENT
  Age: 41 Year
  Sex: Female

DRUGS (1)
  1. BENEPALI [Suspect]
     Active Substance: ETANERCEPT
     Indication: ANKYLOSING SPONDYLITIS
     Dosage: UNKNOWN
     Route: 058
     Dates: start: 2019

REACTIONS (6)
  - Swelling face [Unknown]
  - Erythema [Unknown]
  - Feeling abnormal [Unknown]
  - Ocular hyperaemia [Unknown]
  - Product substitution issue [Unknown]
  - Dizziness [Unknown]

NARRATIVE: CASE EVENT DATE: 2019
